FAERS Safety Report 16515630 (Version 1)
Quarter: 2019Q3

REPORT INFORMATION
  Report Type: Spontaneous
  Country: US (occurrence: US)
  Receive Date: 20190522
  Receipt Date: 20190522
  Transmission Date: 20191004
  Serious: No
  Sender: FDA-Public Use
  Company Number: None

PATIENT
  Age: 51 Year
  Sex: Female

DRUGS (3)
  1. LAMOTRIGINE 25MG [Suspect]
     Active Substance: LAMOTRIGINE
  2. BUSPIRONE [Suspect]
     Active Substance: BUSPIRONE HYDROCHLORIDE
  3. MAVYRET [Suspect]
     Active Substance: GLECAPREVIR\PIBRENTASVIR
     Route: 048
     Dates: start: 201904, end: 201905

REACTIONS (3)
  - Urticaria [None]
  - Confusional state [None]
  - Pruritus [None]

NARRATIVE: CASE EVENT DATE: 20190522
